FAERS Safety Report 4979086-1 (Version None)
Quarter: 2006Q2

REPORT INFORMATION
  Report Type: 
  Country: None (occurrence: None)
  Receive Date: 20060414
  Receipt Date: 20060412
  Transmission Date: 20061013
  Serious: Yes (Death)
  Sender: FDA-Public Use
  Company Number: E044-318-3913

PATIENT
  Age: 83 Year
  Sex: Male
  Weight: 69 kg

DRUGS (10)
  1. DONEPEZIL HCL [Suspect]
     Indication: DEMENTIA
     Dosage: 5 MG, 1 IN 1 D, ORAL; SEE IMAGE
     Route: 048
     Dates: start: 20050525, end: 20050620
  2. DONEPEZIL HCL [Suspect]
     Indication: DEMENTIA
     Dosage: 5 MG, 1 IN 1 D, ORAL; SEE IMAGE
     Route: 048
     Dates: start: 20050621, end: 20050718
  3. DONEPEZIL HCL [Suspect]
     Indication: DEMENTIA
     Dosage: 5 MG, 1 IN 1 D, ORAL; SEE IMAGE
     Route: 048
     Dates: start: 20050719, end: 20050823
  4. DONEPEZIL HCL [Suspect]
     Indication: DEMENTIA
     Dosage: 5 MG, 1 IN 1 D, ORAL; SEE IMAGE
     Route: 048
     Dates: start: 20050824, end: 20051211
  5. DONEPEZIL HCL [Suspect]
     Indication: DEMENTIA
     Dosage: DOUBLEBLIND, 1 IN 1 D, ORAL
     Route: 048
     Dates: start: 20041214, end: 20050524
  6. STALEVO (SINEMET) [Concomitant]
  7. MODAFINIL [Concomitant]
  8. ASPIRIN [Concomitant]
  9. SINEMET [Concomitant]
  10. MADOPAR DISPERSIBLE (MADOPAR) [Concomitant]

REACTIONS (4)
  - CARDIAC ARREST [None]
  - CHEST PAIN [None]
  - DYSPEPSIA [None]
  - FALL [None]
